FAERS Safety Report 7937479-4 (Version None)
Quarter: 2011Q4

REPORT INFORMATION
  Report Type: 
  Country: None (occurrence: None)
  Receive Date: 20111123
  Receipt Date: 20111122
  Transmission Date: 20120403
  Serious: Yes (Hospitalization)
  Sender: FDA-Public Use
  Company Number: US-BRISTOL-MYERS SQUIBB COMPANY-16217770

PATIENT
  Age: 52 Year
  Sex: Male
  Weight: 135 kg

DRUGS (9)
  1. RANITIDINE [Concomitant]
     Indication: GASTROOESOPHAGEAL REFLUX DISEASE
  2. LISINOPRIL AND HYDROCHLOROTHIAZIDE [Concomitant]
  3. ABILIFY [Concomitant]
     Indication: SCHIZOPHRENIA
     Dates: start: 20081231
  4. SIMVASTATIN [Concomitant]
     Indication: BLOOD CHOLESTEROL INCREASED
  5. KOMBIGLYZE XR [Suspect]
     Indication: TYPE 2 DIABETES MELLITUS
     Dosage: 1DF:5/2000 UNIT NOS
     Route: 048
     Dates: start: 20110204, end: 20111107
  6. ABILIFY [Concomitant]
     Indication: BIPOLAR DISORDER
     Dates: start: 20081231
  7. HUMULIN R [Concomitant]
     Dosage: 1 DOSAGE FORM = 500 UNITS
  8. QUETIAPINE [Concomitant]
     Indication: SCHIZOPHRENIA
  9. ATENOLOL [Concomitant]
     Indication: HYPERTENSION

REACTIONS (1)
  - PANCREATITIS ACUTE [None]
